FAERS Safety Report 10413320 (Version 1)
Quarter: 2014Q3

REPORT INFORMATION
  Report Type: Spontaneous
  Country: US (occurrence: None)
  Receive Date: 20140825
  Receipt Date: 20140825
  Transmission Date: 20150326
  Serious: Yes (Other)
  Sender: FDA-Public Use
  Company Number: 2014-20198

PATIENT
  Age: 92 Year
  Sex: Female

DRUGS (1)
  1. EYLEA [Suspect]
     Active Substance: AFLIBERCEPT
     Indication: AGE-RELATED MACULAR DEGENERATION
     Dosage: 2 MG EVERY 2 MONTHS, ITRAOCULAR
     Route: 031
     Dates: start: 201310

REACTIONS (2)
  - Endophthalmitis [None]
  - Bacterial infection [None]

NARRATIVE: CASE EVENT DATE: 20140821
